FAERS Safety Report 8830650 (Version 2)
Quarter: 2012Q4

REPORT INFORMATION
  Report Type: Report from Study
  Country: US (occurrence: US)
  Receive Date: 20121009
  Receipt Date: 20121206
  Transmission Date: 20130627
  Serious: Yes (Hospitalization)
  Sender: FDA-Public Use
  Company Number: US-ABBOTT-12P-163-0991713-00

PATIENT
  Sex: Female
  Weight: 80.81 kg

DRUGS (1)
  1. LUPRON DEPOT [Suspect]
     Indication: UTERINE LEIOMYOMA
     Dates: start: 20120410, end: 20121018

REACTIONS (2)
  - Pneumothorax [Recovered/Resolved]
  - Pneumothorax [Recovered/Resolved]
